FAERS Safety Report 5826320-1 (Version None)
Quarter: 2008Q3

REPORT INFORMATION
  Report Type: 
  Country: None (occurrence: None)
  Receive Date: 20080729
  Receipt Date: 20080717
  Transmission Date: 20090109
  Serious: Yes (Hospitalization, Other)
  Sender: FDA-Public Use
  Company Number: JP-PFIZER INC-2008060307

PATIENT
  Age: 16 Year
  Sex: Female

DRUGS (2)
  1. PHENYTOIN [Suspect]
     Indication: STATUS EPILEPTICUS
     Route: 042
  2. PHENOBARBITAL TAB [Concomitant]
     Indication: STATUS EPILEPTICUS

REACTIONS (7)
  - ANTICONVULSANT DRUG LEVEL BELOW THERAPEUTIC [None]
  - BLOOD CREATINE PHOSPHOKINASE INCREASED [None]
  - BLOOD LACTATE DEHYDROGENASE INCREASED [None]
  - COMPLEX PARTIAL SEIZURES [None]
  - GASTROINTESTINAL HYPOMOTILITY [None]
  - PORTAL VENOUS GAS [None]
  - THYROID FUNCTION TEST ABNORMAL [None]
